FAERS Safety Report 12446244 (Version 1)
Quarter: 2016Q2

REPORT INFORMATION
  Report Type: Spontaneous
  Country: US (occurrence: US)
  Receive Date: 20160608
  Receipt Date: 20160608
  Transmission Date: 20160815
  Serious: Yes (Other)
  Sender: FDA-Public Use
  Company Number: US-TEVA-620006USA

PATIENT
  Age: 19 Year
  Sex: Male
  Weight: 72.64 kg

DRUGS (1)
  1. OLANZAPINE. [Suspect]
     Active Substance: OLANZAPINE
     Indication: BIPOLAR I DISORDER
     Dosage: 10 MILLIGRAM DAILY;
     Route: 048
     Dates: start: 20150905

REACTIONS (6)
  - Somnolence [Unknown]
  - Hypoaesthesia [Unknown]
  - Disturbance in social behaviour [Unknown]
  - Suicidal ideation [Unknown]
  - Weight increased [Unknown]
  - Overdose [Unknown]

NARRATIVE: CASE EVENT DATE: 20150905
